FAERS Safety Report 10104125 (Version 4)
Quarter: 2014Q2

REPORT INFORMATION
  Report Type: Report from Study
  Country: US (occurrence: US)
  Receive Date: 20140424
  Receipt Date: 20140603
  Transmission Date: 20141212
  Serious: No
  Sender: FDA-Public Use
  Company Number: US-009507513-1404USA011148

PATIENT
  Sex: Male
  Weight: 1.41 kg

DRUGS (4)
  1. ISENTRESS [Suspect]
     Indication: HIV INFECTION
     Dosage: 800 MG/DAY
     Route: 064
  2. EPZICOM [Suspect]
     Indication: HIV INFECTION
     Dosage: 1 TAB/CAPS TOTAL DAILY DOSE
     Route: 064
  3. PREZISTA [Suspect]
     Indication: HIV INFECTION
     Dosage: 1200 MG TOTAL DAILY DOSE
     Route: 064
  4. NORVIR [Suspect]
     Indication: HIV INFECTION
     Dosage: 100 MG TOTAL DAILY DOSE
     Route: 064

REACTIONS (2)
  - Hydrocephalus [Recovered/Resolved]
  - Foetal exposure during pregnancy [Unknown]
